FAERS Safety Report 9054094 (Version 1)
Quarter: 2013Q1

REPORT INFORMATION
  Report Type: Spontaneous
  Country: US (occurrence: US)
  Receive Date: 20130208
  Receipt Date: 20130208
  Transmission Date: 20140127
  Serious: No
  Sender: FDA-Public Use
  Company Number: US-BAYER-2013-010161

PATIENT
  Sex: Female
  Weight: 84 kg

DRUGS (18)
  1. BETASERON [Suspect]
     Indication: MULTIPLE SCLEROSIS
     Dosage: 0.25 MG, QOD
     Route: 058
  2. EFFEXOR [Concomitant]
  3. NEURONTIN [Concomitant]
  4. DILAUDID [Concomitant]
  5. SYNTHROID [Concomitant]
  6. CYPROHEPTADINE [Concomitant]
  7. VALIUM [Concomitant]
  8. BACLOFEN [Concomitant]
  9. IMITREX [Concomitant]
  10. PROMETHAZIN [Concomitant]
  11. PREVACID [Concomitant]
  12. IBUPROFEN [Concomitant]
  13. FISH OIL [Concomitant]
  14. MULTIVITAMIN [Concomitant]
  15. CALCIUM +VIT D [Concomitant]
  16. TYLENOL [PARACETAMOL] [Concomitant]
  17. NECON [Concomitant]
  18. PROBIOTICS [Concomitant]

REACTIONS (1)
  - Drug ineffective [Unknown]
